FAERS Safety Report 20643517 (Version 1)
Quarter: 2022Q1

REPORT INFORMATION
  Report Type: Spontaneous
  Country: US (occurrence: None)
  Receive Date: 20220327
  Receipt Date: 20220327
  Transmission Date: 20220423
  Serious: Yes (Hospitalization)
  Sender: FDA-Public Use
  Company Number: None

PATIENT
  Age: 59 Year
  Sex: Male
  Weight: 102.15 kg

DRUGS (4)
  1. SOTROVIMAB [Suspect]
     Active Substance: SOTROVIMAB
     Indication: SARS-CoV-2 test positive
     Route: 042
  2. LOSARTAN [Concomitant]
     Active Substance: LOSARTAN
  3. RITUXAN [Concomitant]
     Active Substance: RITUXIMAB
  4. ASPIRIN [Concomitant]
     Active Substance: ASPIRIN

REACTIONS (5)
  - Fatigue [None]
  - Hyperhidrosis [None]
  - Pulmonary oedema [None]
  - Pneumonia [None]
  - Haemoptysis [None]

NARRATIVE: CASE EVENT DATE: 20220312
